FAERS Safety Report 25058114 (Version 1)
Quarter: 2025Q1

REPORT INFORMATION
  Report Type: Spontaneous
  Country: US (occurrence: None)
  Receive Date: 20250307
  Receipt Date: 20250307
  Transmission Date: 20250409
  Serious: Yes (unspecified)
  Sender: FDA-CTU
  Company Number: None

PATIENT
  Age: 60 Year
  Sex: Male

DRUGS (2)
  1. LENALIDOMIDE [Suspect]
     Active Substance: LENALIDOMIDE
     Indication: Plasma cell myeloma
     Dosage: 10MG QD ORL
     Route: 048
     Dates: start: 20201026
  2. MELPHALAN [Suspect]
     Active Substance: MELPHALAN

REACTIONS (1)
  - Herpes zoster reactivation [None]

NARRATIVE: CASE EVENT DATE: 20250221
